FAERS Safety Report 24846085 (Version 1)
Quarter: 2025Q1

REPORT INFORMATION
  Report Type: Spontaneous
  Country: JP (occurrence: JP)
  Receive Date: 20250115
  Receipt Date: 20250115
  Transmission Date: 20250409
  Serious: Yes (Death, Other)
  Sender: ANI
  Company Number: JP-ANIPHARMA-2024-JP-000320

PATIENT
  Age: 71 Year
  Sex: Female
  Weight: 37 kg

DRUGS (12)
  1. ANASTROZOLE [Suspect]
     Active Substance: ANASTROZOLE
     Indication: Breast cancer
     Route: 048
     Dates: start: 20190520, end: 20220510
  2. ADRIACIN [Concomitant]
     Active Substance: DOXORUBICIN HYDROCHLORIDE
     Dates: start: 20200319, end: 20200701
  3. CYCLOPHOSPHAMIDE [Concomitant]
     Active Substance: CYCLOPHOSPHAMIDE
     Dates: start: 20200319, end: 20240811
  4. TAXOL [Concomitant]
     Active Substance: PACLITAXEL
     Dates: start: 20200422, end: 20201028
  5. TRUQAP [Suspect]
     Active Substance: CAPIVASERTIB
     Dates: end: 202411
  6. DEVICE [Suspect]
     Active Substance: DEVICE
  7. FULVESTRANT [Suspect]
     Active Substance: FULVESTRANT
     Route: 030
     Dates: end: 20200120
  8. LYNPARZA [Suspect]
     Active Substance: OLAPARIB
     Route: 048
     Dates: end: 20231114
  9. VONOPRAZAN FUMARATE [Concomitant]
     Active Substance: VONOPRAZAN FUMARATE
  10. OXYCONTIN [Concomitant]
     Active Substance: OXYCODONE HYDROCHLORIDE
  11. ZOMETA [Concomitant]
     Active Substance: ZOLEDRONIC ACID
     Dates: start: 20190530, end: 20241023
  12. IBRANCE [Concomitant]
     Active Substance: PALBOCICLIB
     Dates: start: 20191212, end: 20220510

REACTIONS (19)
  - Tumour marker increased [Unknown]
  - Neutrophil count decreased [Unknown]
  - Nausea [Unknown]
  - Malaise [Unknown]
  - Diabetic ketoacidosis [Fatal]
  - Dehydration [Fatal]
  - Cystitis haemorrhagic [Unknown]
  - Pulmonary toxicity [Unknown]
  - Radiation pneumonitis [Unknown]
  - Monoplegia [Unknown]
  - Decreased appetite [Unknown]
  - Renal failure [Fatal]
  - Respiratory failure [Fatal]
  - Circulatory collapse [Fatal]
  - Diarrhoea [Unknown]
  - Vomiting [Unknown]
  - Insulin resistance [Unknown]
  - Thoracic vertebral fracture [Unknown]
  - Pulmonary embolism [Unknown]

NARRATIVE: CASE EVENT DATE: 20200120
